FAERS Safety Report 5867872-5 (Version None)
Quarter: 2008Q3

REPORT INFORMATION
  Report Type: 
  Country: None (occurrence: None)
  Receive Date: 20080902
  Receipt Date: 20080826
  Transmission Date: 20090109
  Serious: Yes (Life-Threatening, Hospitalization, Other)
  Sender: FDA-Public Use
  Company Number: FR-BOEHRINGER INGELHEIM GMBH, GERMANY-2008-BP-13420RO

PATIENT
  Age: 37 Year
  Sex: Male

DRUGS (4)
  1. METHADONE HCL [Suspect]
     Indication: DRUG WITHDRAWAL MAINTENANCE THERAPY
  2. METHADONE HCL [Suspect]
  3. DOBUTAMINE HCL [Concomitant]
  4. NOREPINEPHERINE [Concomitant]

REACTIONS (11)
  - COMA [None]
  - CONDUCTION DISORDER [None]
  - CYTOLYTIC HEPATITIS [None]
  - HYPOVENTILATION [None]
  - METABOLIC ACIDOSIS [None]
  - MIOSIS [None]
  - OVERDOSE [None]
  - RALES [None]
  - RENAL FAILURE ACUTE [None]
  - SHOCK [None]
  - VENTRICULAR FAILURE [None]
